FAERS Safety Report 4898508-8 (Version None)
Quarter: 2006Q1

REPORT INFORMATION
  Report Type: 
  Country: None (occurrence: None)
  Receive Date: 20060130
  Receipt Date: 20060117
  Transmission Date: 20060701
  Serious: Yes (Death, Hospitalization, Other)
  Sender: FDA-Public Use
  Company Number: 2005060821

PATIENT
  Sex: Female

DRUGS (11)
  1. CELEBREX [Suspect]
     Indication: ARTHRITIS
     Dosage: 200 MG (UNK, 1 D),
     Dates: start: 20000101
  2. ZESTRIL [Concomitant]
  3. NORVASC [Concomitant]
  4. ISORDIL [Concomitant]
  5. ATROVENT [Concomitant]
  6. ALBUTEROL [Concomitant]
  7. SEREVENT [Concomitant]
  8. FLOVENT [Concomitant]
  9. PLAVIX [Concomitant]
  10. ACETYLSALICYLIC ACID SRT [Concomitant]
  11. MONTELUKAST (MONTELUKAST) [Concomitant]

REACTIONS (13)
  - BUNDLE BRANCH BLOCK RIGHT [None]
  - CARDIAC DISORDER [None]
  - CARDIO-RESPIRATORY ARREST [None]
  - CEREBROVASCULAR ACCIDENT [None]
  - CORONARY ARTERY OCCLUSION [None]
  - DEEP VEIN THROMBOSIS [None]
  - HEPATOCELLULAR DAMAGE [None]
  - MYOCARDIAL INFARCTION [None]
  - PLEURAL EFFUSION [None]
  - PNEUMONIA [None]
  - PULMONARY EMBOLISM [None]
  - RESPIRATORY DISTRESS [None]
  - THROMBOSIS [None]
